FAERS Safety Report 6520685-3 (Version None)
Quarter: 2009Q4

REPORT INFORMATION
  Report Type: 
  Country: None (occurrence: None)
  Receive Date: 20091229
  Receipt Date: 20091223
  Transmission Date: 20100525
  Serious: Yes (Other)
  Sender: FDA-Public Use
  Company Number: DE-MERCK-0912DEU00063

PATIENT
  Age: 80 Year
  Sex: Female

DRUGS (4)
  1. FOSAMAX PLUS D [Suspect]
     Indication: OSTEOPOROSIS
     Route: 048
  2. FOSAMAX PLUS D [Suspect]
     Route: 065
  3. FOSAMAX [Suspect]
     Indication: OSTEOPOROSIS
     Route: 048
     Dates: start: 19970101
  4. FLUTICASONE PROPIONATE [Concomitant]
     Route: 055
     Dates: start: 20010101

REACTIONS (3)
  - FEMUR FRACTURE [None]
  - HYPOAESTHESIA [None]
  - SKIN DISORDER [None]
